FAERS Safety Report 7938547-3 (Version None)
Quarter: 2011Q4

REPORT INFORMATION
  Report Type: 
  Country: None (occurrence: None)
  Receive Date: 20111123
  Receipt Date: 20111118
  Transmission Date: 20120403
  Serious: Yes (Other)
  Sender: FDA-Public Use
  Company Number: PL-PFIZER INC-2011206935

PATIENT
  Age: 33 Year
  Sex: Female
  Weight: 52 kg

DRUGS (7)
  1. MYDOCALM ^CHOAY LABS.^ [Concomitant]
     Indication: NECK PAIN
  2. VARENICLINE TARTRATE [Suspect]
     Indication: SMOKING CESSATION THERAPY
     Dosage: 0.5 MG, UNK
     Route: 048
     Dates: start: 20110824, end: 20110801
  3. YASMIN [Concomitant]
     Dosage: UNK
  4. VARENICLINE TARTRATE [Suspect]
     Dosage: 1 MG, UNK
     Route: 048
     Dates: start: 20110831, end: 20110905
  5. MYDOCALM ^CHOAY LABS.^ [Concomitant]
     Indication: HEADACHE
     Dosage: UNK
     Route: 048
     Dates: start: 20110822
  6. KETOPROFEN [Concomitant]
     Indication: HEADACHE
     Dosage: 1 TAB EVERY 24 HOURS
     Route: 048
     Dates: start: 20110822
  7. KETOPROFEN [Concomitant]
     Indication: NECK PAIN

REACTIONS (10)
  - DRY MOUTH [None]
  - NIGHTMARE [None]
  - VOMITING [None]
  - HYPERSOMNIA [None]
  - INITIAL INSOMNIA [None]
  - DRY SKIN [None]
  - IRRITABILITY [None]
  - RASH [None]
  - DEPRESSION [None]
  - ARRHYTHMIA [None]
